FAERS Safety Report 5155428-1 (Version None)
Quarter: 2006Q4

REPORT INFORMATION
  Report Type: 
  Country: None (occurrence: None)
  Receive Date: 20061121
  Receipt Date: 20060719
  Transmission Date: 20070319
  Serious: No
  Sender: FDA-Public Use
  Company Number: PHEH2006US09240

PATIENT
  Age: 11 Year
  Sex: Female
  Weight: 35.4 kg

DRUGS (2)
  1. TRILEPTAL [Suspect]
     Indication: EPILEPSY
     Dosage: 150 MG AM; 300 MG PM
     Route: 048
     Dates: start: 20041104, end: 20060724
  2. TRILEPTAL [Suspect]
     Dates: end: 20060724

REACTIONS (3)
  - BLOOD THYROID STIMULATING HORMONE DECREASED [None]
  - HYPOTHYROIDISM [None]
  - THYROXINE DECREASED [None]
